FAERS Safety Report 7630188-0 (Version None)
Quarter: 2011Q3

REPORT INFORMATION
  Report Type: 
  Country: None (occurrence: None)
  Receive Date: 20110722
  Receipt Date: 20110708
  Transmission Date: 20111222
  Serious: Yes (Other)
  Sender: FDA-Public Use
  Company Number: PHHY2011BR61423

PATIENT
  Sex: Female
  Weight: 62 kg

DRUGS (4)
  1. METFORMIN HCL [Concomitant]
     Indication: DIABETES MELLITUS
     Dosage: 850 MG, BID
     Route: 048
  2. EXFORGE HCT [Suspect]
     Dosage: UNK UKN, UNK
     Dates: start: 20110609
  3. EXFORGE HCT [Suspect]
     Indication: HYPERTENSION
     Dosage: 1 DF, (160/25/10MG ) DAILY
     Route: 048
     Dates: start: 20110301, end: 20110606
  4. SIMVASTATIN [Concomitant]
     Dosage: 20 MG, QD
     Route: 048

REACTIONS (7)
  - NERVOUSNESS [None]
  - FEELING ABNORMAL [None]
  - DISORIENTATION [None]
  - TENSION [None]
  - MALAISE [None]
  - PNEUMONIA [None]
  - RESPIRATORY RATE INCREASED [None]
